FAERS Safety Report 10049356 (Version 2)
Quarter: 2014Q2

REPORT INFORMATION
  Report Type: Other
  Country: IT (occurrence: IT)
  Receive Date: 20140401
  Receipt Date: 20140401
  Transmission Date: 20141212
  Serious: Yes (Hospitalization, Other)
  Sender: FDA-Public Use
  Company Number: IT-SUN PHARMACEUTICAL INDUSTRIES LTD-2014SUN00064

PATIENT
  Sex: 0

DRUGS (4)
  1. OLANZAPINA SUN 10 MG COMPRESSA [Suspect]
     Indication: INTENTIONAL SELF-INJURY
     Dosage: 5 MG, TOTAL 1
     Route: 048
     Dates: start: 20131220, end: 20131220
  2. XANAX [Suspect]
     Indication: INTENTIONAL SELF-INJURY
     Dosage: 2 DF TOTAL
     Route: 048
     Dates: start: 20131220, end: 20131220
  3. EFEXOR [Suspect]
     Indication: INTENTIONAL SELF-INJURY
     Dosage: 2 DF, TOTAL
     Route: 048
     Dates: start: 20131220, end: 20131220
  4. LENDORMIN [Suspect]
     Indication: INTENTIONAL SELF-INJURY
     Dosage: 2 DF, TOTAL
     Route: 048
     Dates: start: 20131220, end: 20131220

REACTIONS (5)
  - Drug abuse [Recovering/Resolving]
  - Headache [Recovering/Resolving]
  - Mydriasis [Recovering/Resolving]
  - Intentional self-injury [Unknown]
  - Sopor [Recovering/Resolving]
